FAERS Safety Report 10230351 (Version 1)
Quarter: 2014Q2

REPORT INFORMATION
  Report Type: Spontaneous
  Country: US (occurrence: US)
  Receive Date: 20140611
  Receipt Date: 20140611
  Transmission Date: 20141212
  Serious: No
  Sender: FDA-Public Use
  Company Number: US-PFIZER INC-2014159979

PATIENT
  Age: 80 Year
  Sex: Female
  Weight: 45.35 kg

DRUGS (1)
  1. XELJANZ [Suspect]
     Indication: RHEUMATOID ARTHRITIS
     Dosage: 25 MG, DAILY
     Dates: start: 20140602

REACTIONS (1)
  - Drug ineffective [Unknown]
